FAERS Safety Report 9088477 (Version 3)
Quarter: 2013Q1

REPORT INFORMATION
  Report Type: Report from Study
  Country: GB (occurrence: GB)
  Receive Date: 20130201
  Receipt Date: 20130325
  Transmission Date: 20140127
  Serious: Yes (Death, Other)
  Sender: FDA-Public Use
  Company Number: GB-ABBOTT-13P-167-1044399-00

PATIENT
  Sex: Female
  Weight: 94.6 kg

DRUGS (13)
  1. HUMIRA [Suspect]
     Indication: RHEUMATOID ARTHRITIS
     Route: 058
     Dates: start: 20070209
  2. LEFLUNOMIDE [Concomitant]
     Indication: PRODUCT USED FOR UNKNOWN INDICATION
  3. ATENOLOL [Concomitant]
  4. CALCIUM [Concomitant]
  5. LEVOTHYROXINE [Concomitant]
  6. AMLODIPINE [Concomitant]
  7. SIMVASTATIN [Concomitant]
  8. PREDNISOLONE [Concomitant]
  9. BETAHISTINE [Concomitant]
  10. DOMPERIDONE [Concomitant]
  11. DEXAMETHASONE [Concomitant]
  12. RANITIDINE [Concomitant]
  13. TRAMADOL [Concomitant]

REACTIONS (4)
  - Pulmonary embolism [Fatal]
  - Adenocarcinoma pancreas [Fatal]
  - Abdominal pain upper [Unknown]
  - Abdominal distension [Unknown]
